FAERS Safety Report 11167917 (Version 1)
Quarter: 2015Q2

REPORT INFORMATION
  Report Type: Spontaneous
  Country: US (occurrence: None)
  Receive Date: 20150604
  Receipt Date: 20150604
  Transmission Date: 20150821
  Serious: Yes (Other)
  Sender: FDA-Public Use
  Company Number: None

PATIENT
  Age: 48 Year
  Sex: Male
  Weight: 83.46 kg

DRUGS (1)
  1. DEPO-TESTOSTERONE [Suspect]
     Active Substance: TESTOSTERONE CYPIONATE
     Indication: ANDROGEN DEFICIENCY
     Route: 030

REACTIONS (5)
  - Product quality issue [None]
  - Injection site swelling [None]
  - Injection site warmth [None]
  - Injection site erythema [None]
  - Product substitution issue [None]

NARRATIVE: CASE EVENT DATE: 20150524
